FAERS Safety Report 15116816 (Version 1)
Quarter: 2018Q3

REPORT INFORMATION
  Report Type: Report from Study
  Country: US (occurrence: US)
  Receive Date: 20180706
  Receipt Date: 20180706
  Transmission Date: 20181010
  Serious: Yes (Other)
  Sender: FDA-Public Use
  Company Number: US-GILEAD-2018-0348136

PATIENT

DRUGS (5)
  1. CYCLOSPORIN [Concomitant]
     Active Substance: CYCLOSPORINE
  2. ATG RABBIT [Concomitant]
     Active Substance: LAPINE T-LYMPHOCYTE IMMUNE GLOBULIN
  3. LEDIPASVIR/SOFOSBUVIR [Suspect]
     Active Substance: LEDIPASVIR\SOFOSBUVIR
     Indication: CHRONIC HEPATITIS C
     Dosage: UNK
     Route: 065
  4. MMF [Concomitant]
     Active Substance: MYCOPHENOLATE MOFETIL
  5. PRED                               /00016201/ [Concomitant]
     Active Substance: PREDNISONE

REACTIONS (1)
  - Kidney transplant rejection [Unknown]
